FAERS Safety Report 6971998-2 (Version None)
Quarter: 2010Q3

REPORT INFORMATION
  Report Type: 
  Country: None (occurrence: None)
  Receive Date: 20100908
  Receipt Date: 20100908
  Transmission Date: 20110219
  Serious: Yes (Disabling, Other)
  Sender: FDA-Public Use
  Company Number: None

PATIENT
  Sex: Male
  Weight: 95.2554 kg

DRUGS (1)
  1. SPIRONOLACTONE 25/50MG. VINTAGE [Suspect]
     Indication: HYPERTENSION
     Dosage: 25MG TWO TIMES DAY ; 50MG 2X PER DAY
     Dates: start: 20090721, end: 20100510

REACTIONS (2)
  - BREAST ENLARGEMENT [None]
  - BREAST PAIN [None]
